FAERS Safety Report 24239480 (Version 3)
Quarter: 2025Q1

REPORT INFORMATION
  Report Type: Spontaneous
  Country: US (occurrence: US)
  Receive Date: 20240822
  Receipt Date: 20250227
  Transmission Date: 20250408
  Serious: No
  Sender: AVADEL CNS PHARMACEUTICALS, LLC
  Company Number: US-AVADEL CNS PHARMACEUTICALS, LLC-2024AVA01066

PATIENT
  Sex: Male

DRUGS (2)
  1. LUMRYZ [Suspect]
     Active Substance: SODIUM OXYBATE
     Indication: Narcolepsy
     Dosage: 9 G, ONCE NIGHTLY
     Dates: start: 20240618, end: 2024
  2. LUMRYZ [Suspect]
     Active Substance: SODIUM OXYBATE
     Indication: Cataplexy
     Dosage: 9 G, ONCE NIGHTLY (WOULD OCCASIONALLY TAKE A SECOND DOSE)
     Dates: start: 2024, end: 202410

REACTIONS (7)
  - Middle insomnia [Not Recovered/Not Resolved]
  - Appetite disorder [Recovered/Resolved]
  - Insomnia [Unknown]
  - Frustration tolerance decreased [Unknown]
  - Nausea [Recovered/Resolved]
  - Extra dose administered [Recovered/Resolved]
  - Incorrect dose administered [Unknown]

NARRATIVE: CASE EVENT DATE: 20240101
